FAERS Safety Report 8786310 (Version 1)
Quarter: 2012Q4

REPORT INFORMATION
  Report Type: 
  Country: CH (occurrence: CH)
  Receive Date: 20120914
  Receipt Date: 20120914
  Transmission Date: 20130627
  Serious: Yes (Disabling)
  Sender: FDA-Public Use
  Company Number: CH-PFIZER INC-2012225232

PATIENT
  Age: 51 Year
  Sex: Female

DRUGS (7)
  1. EFEXOR ER [Suspect]
     Dosage: 75 mg, 1x/day
     Route: 048
     Dates: start: 201204, end: 20120422
  2. EFEXOR ER [Suspect]
     Dosage: 150 mg, 1x/day
     Route: 048
     Dates: start: 20120423
  3. ZYPREXA [Suspect]
     Dosage: 2.5 mg, 2x/day
     Route: 048
     Dates: start: 20120430, end: 20120513
  4. ZYPREXA [Suspect]
     Dosage: 2.5 mg, 3x/day
     Route: 048
     Dates: start: 20120514
  5. TRAMAL [Concomitant]
     Dosage: 50 mg, 1x/day
     Route: 048
  6. VALIUM [Concomitant]
     Dosage: 2 mg, 1x/day
     Route: 048
  7. ZOLPIDEM [Concomitant]
     Dosage: 10 mg, 1x/day
     Route: 048

REACTIONS (3)
  - Gynaecomastia [Unknown]
  - Suicidal ideation [None]
  - Hyperprolactinaemia [None]
